FAERS Safety Report 20895858 (Version 1)
Quarter: 2022Q2

REPORT INFORMATION
  Report Type: Spontaneous
  Country: CN (occurrence: CN)
  Receive Date: 20220531
  Receipt Date: 20220531
  Transmission Date: 20220720
  Serious: Yes (Disabling)
  Sender: FDA-Public Use
  Company Number: CN-NOVARTISPH-NVSC2022CN122976

PATIENT
  Age: 64 Year
  Sex: Female
  Weight: 72 kg

DRUGS (7)
  1. ROSUVASTATIN CALCIUM [Suspect]
     Active Substance: ROSUVASTATIN CALCIUM
     Indication: Knee arthroplasty
     Dosage: 10 MG, QD
     Route: 048
     Dates: start: 20220415, end: 20220422
  2. GABAPENTIN [Suspect]
     Active Substance: GABAPENTIN
     Indication: Knee arthroplasty
     Dosage: 0.3 G, QD
     Route: 048
     Dates: start: 20220418, end: 20220425
  3. TRAMADOL HYDROCHLORIDE [Suspect]
     Active Substance: TRAMADOL HYDROCHLORIDE
     Indication: Knee arthroplasty
     Dosage: 0.1 G, QD
     Route: 048
     Dates: start: 20220418, end: 20220426
  4. PARECOXIB SODIUM [Suspect]
     Active Substance: PARECOXIB SODIUM
     Indication: Knee arthroplasty
     Dosage: 30 MG, BID
     Route: 030
     Dates: start: 20220415, end: 20220421
  5. HEPARIN SODIUM [Concomitant]
     Active Substance: HEPARIN SODIUM
     Indication: Knee arthroplasty
     Dosage: 4250 IU, QD (LOW MOLECULAR WEIGHT)
     Route: 058
     Dates: start: 20220418, end: 20220425
  6. ALFACALCIDOL [Concomitant]
     Active Substance: ALFACALCIDOL
     Indication: Osteoporosis
     Dosage: 1 UG, QD
     Route: 048
     Dates: start: 20220415, end: 20220422
  7. MIACALCIC [Concomitant]
     Active Substance: CALCITONIN SALMON
     Indication: Osteoporosis
     Dosage: 100 IU, QD
     Route: 030
     Dates: start: 20220415, end: 20220426

REACTIONS (1)
  - Hepatic function abnormal [Recovering/Resolving]

NARRATIVE: CASE EVENT DATE: 20220422
